FAERS Safety Report 20716939 (Version 1)
Quarter: 2022Q2

REPORT INFORMATION
  Report Type: Spontaneous
  Country: US (occurrence: US)
  Receive Date: 20220416
  Receipt Date: 20220416
  Transmission Date: 20220721
  Serious: Yes (Other)
  Sender: FDA-Public Use
  Company Number: US-FRESENIUS KABI-FK202204454

PATIENT
  Sex: Male

DRUGS (4)
  1. SMOFLIPID [Suspect]
     Active Substance: FISH OIL\MEDIUM-CHAIN TRIGLYCERIDES\OLIVE OIL\SOYBEAN OIL
     Indication: Parenteral nutrition
     Route: 051
  2. SMOFLIPID [Suspect]
     Active Substance: FISH OIL\MEDIUM-CHAIN TRIGLYCERIDES\OLIVE OIL\SOYBEAN OIL
     Indication: Weight gain poor
     Route: 051
  3. OMEGAVEN [Suspect]
     Active Substance: FISH OIL
     Indication: Parenteral nutrition associated liver disease
     Route: 051
     Dates: start: 202001
  4. OMEGAVEN [Suspect]
     Active Substance: FISH OIL
     Indication: Weight gain poor
     Route: 051

REACTIONS (4)
  - Parenteral nutrition associated liver disease [Unknown]
  - Off label use [Unknown]
  - Off label use [Unknown]
  - Weight gain poor [Recovering/Resolving]
